FAERS Safety Report 10017161 (Version 1)
Quarter: 2014Q1

REPORT INFORMATION
  Report Type: Spontaneous
  Country: CA (occurrence: CA)
  Receive Date: 20140318
  Receipt Date: 20140318
  Transmission Date: 20141002
  Serious: Yes (Hospitalization)
  Sender: FDA-Public Use
  Company Number: CA-AMGEN-CANSP2014018383

PATIENT
  Age: 61 Year
  Sex: Male

DRUGS (12)
  1. ENBREL [Suspect]
     Indication: RHEUMATOID ARTHRITIS
     Dosage: 50 MG, UNK
     Route: 065
     Dates: start: 20121017
  2. CRESTOR [Concomitant]
     Dosage: UNK
  3. VENTOLIN                           /00139501/ [Concomitant]
     Dosage: UNK UNK, AS NECESSARY
  4. RAMIPRIL [Concomitant]
     Dosage: 2.5 MG, QD
  5. BYSTOLIC [Concomitant]
     Dosage: 5 MG, UNK
  6. ACETYLSALICYLIC ACID [Concomitant]
     Dosage: 81 MG, UNK
  7. BRILINTA [Concomitant]
     Dosage: 90 MG, UNK
  8. TECTA [Concomitant]
     Dosage: UNK
  9. METHOTREXATE [Concomitant]
     Dosage: UNK
  10. FOLIC ACID [Concomitant]
  11. CLONAZEPAM [Concomitant]
     Dosage: UNK
  12. NITROGLYCERIN [Concomitant]
     Dosage: UNK

REACTIONS (2)
  - Myocardial infarction [Recovered/Resolved]
  - Coronary artery occlusion [Recovered/Resolved]
